FAERS Safety Report 14815124 (Version 4)
Quarter: 2021Q3

REPORT INFORMATION
  Report Type: Spontaneous
  Country: ES (occurrence: ES)
  Receive Date: 20180426
  Receipt Date: 20210705
  Transmission Date: 20211014
  Serious: Yes (Hospitalization, Other)
  Sender: FDA-Public Use
  Company Number: ES-AUROBINDO-AUR-APL-2017-45167

PATIENT
  Age: 14 Year
  Sex: Female

DRUGS (21)
  1. XYREM [Suspect]
     Active Substance: SODIUM OXYBATE
     Indication: NARCOLEPSY
     Dosage: UNK, LOW DOSE
     Route: 065
     Dates: start: 201406, end: 2014
  2. BIPERIDEN [Concomitant]
     Active Substance: BIPERIDEN
     Indication: DYSTONIA
  3. HALOPERIDOL. [Suspect]
     Active Substance: HALOPERIDOL
     Indication: HALLUCINATION
     Dosage: UNK, BETWEEN 1 MG/DAY AND 3 MG/DAY
     Route: 065
  4. HALOPERIDOL. [Suspect]
     Active Substance: HALOPERIDOL
     Indication: DYSPHORIA
     Dosage: 1 MILLIGRAM, DAILY
     Route: 065
  5. BROMAZEPAM [Suspect]
     Active Substance: BROMAZEPAM
     Indication: EATING DISORDER
  6. VENLAFAXINE [Concomitant]
     Active Substance: VENLAFAXINE HYDROCHLORIDE
     Indication: PRODUCT USED FOR UNKNOWN INDICATION
     Dosage: UNK
     Route: 065
  7. BIPERIDEN [Concomitant]
     Active Substance: BIPERIDEN
     Indication: HALLUCINATION
     Dosage: 4 MILLIGRAM
     Route: 065
  8. METHYLPHENIDATE HYDROCHLORIDE. [Concomitant]
     Active Substance: METHYLPHENIDATE HYDROCHLORIDE
     Dosage: UNK
     Route: 065
     Dates: start: 201601
  9. RISPERIDONE. [Suspect]
     Active Substance: RISPERIDONE
     Indication: ABNORMAL BEHAVIOUR
     Dosage: UNK
     Route: 065
  10. RISPERIDONE. [Suspect]
     Active Substance: RISPERIDONE
     Indication: HALLUCINATION
  11. XYREM [Suspect]
     Active Substance: SODIUM OXYBATE
     Indication: CATAPLEXY
     Dosage: 4 GRAM, DAILY
     Route: 065
  12. MODIODAL [Suspect]
     Active Substance: MODAFINIL
     Indication: CATAPLEXY
     Dosage: 100 MILLIGRAM, ONCE A DAY
     Route: 065
  13. MODIODAL [Suspect]
     Active Substance: MODAFINIL
     Indication: NARCOLEPSY
  14. RISPERIDONE. [Suspect]
     Active Substance: RISPERIDONE
     Indication: EATING DISORDER
  15. AREMIS (SERTRALINE HYDROCHLORIDE) [Suspect]
     Active Substance: SERTRALINE HYDROCHLORIDE
     Indication: EATING DISORDER
     Dosage: DOSAGE FORM: UNSPECIFIED ()
     Route: 065
  16. BROMAZEPAM [Suspect]
     Active Substance: BROMAZEPAM
     Indication: BEHAVIOUR DISORDER
     Dosage: UNK
     Route: 065
  17. ARIPIPRAZOLE. [Concomitant]
     Active Substance: ARIPIPRAZOLE
     Indication: PSYCHOTIC DISORDER
     Dosage: 1 MILLIGRAM, DAILY
     Route: 065
  18. METHYLPHENIDATE HYDROCHLORIDE. [Concomitant]
     Active Substance: METHYLPHENIDATE HYDROCHLORIDE
     Indication: ATTENTION DEFICIT HYPERACTIVITY DISORDER
     Dosage: UNK
     Route: 065
     Dates: start: 2011
  19. MODAFINIL 100MG [Suspect]
     Active Substance: MODAFINIL
     Indication: NARCOLEPSY
     Dosage: 100 MILLIGRAM, DAILY
     Route: 065
  20. AREMIS (SERTRALINE HYDROCHLORIDE) [Suspect]
     Active Substance: SERTRALINE HYDROCHLORIDE
     Indication: BEHAVIOUR DISORDER
  21. BIPERIDEN [Concomitant]
     Active Substance: BIPERIDEN
     Indication: DELUSION

REACTIONS (14)
  - Dystonia [Unknown]
  - Hallucination, auditory [Recovered/Resolved]
  - Delusion [Unknown]
  - Galactorrhoea [Unknown]
  - Weight increased [Unknown]
  - Polycystic ovaries [Unknown]
  - Irritability [Recovered/Resolved]
  - Dysphoria [Recovered/Resolved]
  - Abnormal behaviour [Recovered/Resolved]
  - Condition aggravated [Unknown]
  - Somnolence [Unknown]
  - Hyperprolactinaemia [Unknown]
  - Cataplexy [Unknown]
  - Suicidal ideation [Recovered/Resolved]

NARRATIVE: CASE EVENT DATE: 201209
